FAERS Safety Report 22214506 (Version 1)
Quarter: 2023Q2

REPORT INFORMATION
  Report Type: Report from Study
  Country: NL (occurrence: NL)
  Receive Date: 20230414
  Receipt Date: 20230414
  Transmission Date: 20230721
  Serious: Yes (Other)
  Sender: FDA-Public Use
  Company Number: NL-ABBVIE-4727499

PATIENT
  Sex: Female

DRUGS (10)
  1. HUMIRA [Suspect]
     Active Substance: ADALIMUMAB
     Indication: Crohn^s disease
     Route: 058
     Dates: start: 201112
  2. HUMIRA [Suspect]
     Active Substance: ADALIMUMAB
     Indication: Spondylitis
     Dosage: FREQUENCY TEXT: WEEKLY
     Route: 058
     Dates: start: 2014, end: 201510
  3. METHOTREXATE [Concomitant]
     Active Substance: METHOTREXATE
     Indication: Crohn^s disease
     Dosage: 25 MG
     Dates: start: 201610, end: 201703
  4. TACROLIMUS [Concomitant]
     Active Substance: TACROLIMUS
     Indication: Crohn^s disease
     Dates: start: 201510
  5. FOLIC ACID [Concomitant]
     Active Substance: FOLIC ACID
     Indication: Crohn^s disease
     Dates: start: 201610
  6. PREDNISONE [Concomitant]
     Active Substance: PREDNISONE
     Indication: Crohn^s disease
     Dosage: 40 MG
     Route: 048
     Dates: start: 201703
  7. PREDNISONE [Concomitant]
     Active Substance: PREDNISONE
     Indication: Crohn^s disease
     Dosage: 40 MG
     Route: 048
     Dates: start: 201610
  8. VEDOLIZUMAB [Concomitant]
     Active Substance: VEDOLIZUMAB
     Indication: Crohn^s disease
     Dates: start: 201510, end: 201610
  9. STELARA [Concomitant]
     Active Substance: USTEKINUMAB
     Indication: Crohn^s disease
     Dates: start: 201703
  10. STELARA [Concomitant]
     Active Substance: USTEKINUMAB
     Indication: Crohn^s disease
     Dosage: RE-INDUCTION? FREQUENCY TEXT: EVERY 4 WEEKS
     Dates: start: 201811

REACTIONS (14)
  - Colitis [Unknown]
  - Fistula [Unknown]
  - Colostomy [Unknown]
  - Enterocutaneous fistula [Unknown]
  - Fistula [Not Recovered/Not Resolved]
  - Fistula [Unknown]
  - Abscess [Unknown]
  - Colostomy [Unknown]
  - Fistula [Unknown]
  - Fistula [Unknown]
  - Hernia [Unknown]
  - Small intestinal resection [Unknown]
  - Stoma site abscess [Unknown]
  - Incarcerated parastomal hernia [Unknown]

NARRATIVE: CASE EVENT DATE: 20160101
